FAERS Safety Report 8763635 (Version 3)
Quarter: 2012Q4

REPORT INFORMATION
  Report Type: Report from Study
  Country: US (occurrence: US)
  Receive Date: 20120831
  Receipt Date: 20121203
  Transmission Date: 20130627
  Serious: Yes (Hospitalization)
  Sender: FDA-Public Use
  Company Number: US-BRISTOL-MYERS SQUIBB COMPANY-16903171

PATIENT
  Age: 51 Year
  Sex: Female

DRUGS (4)
  1. MDX-1106 [Suspect]
     Indication: MALIGNANT MELANOMA
     Dosage: IVPB
     Route: 042
     Dates: start: 20120117
  2. IPILIMUMAB [Suspect]
     Indication: MALIGNANT MELANOMA
     Dosage: IVPB
     Route: 042
     Dates: start: 20120117
  3. HYDROCORTISONE [Concomitant]
     Dates: start: 20120501
  4. LEVOTHYROXINE [Concomitant]
     Dates: start: 20120410

REACTIONS (3)
  - Diarrhoea [Recovered/Resolved]
  - Hypokalaemia [Recovered/Resolved]
  - Vomiting [Recovered/Resolved]
